FAERS Safety Report 24425211 (Version 2)
Quarter: 2024Q4

REPORT INFORMATION
  Report Type: Report from Study
  Country: CA (occurrence: CA)
  Receive Date: 20241010
  Receipt Date: 20241112
  Transmission Date: 20250115
  Serious: Yes (Hospitalization, Other)
  Sender: NOVARTIS
  Company Number: CA-002147023-NVSC2024CA181926

PATIENT
  Age: 76 Year
  Sex: Female

DRUGS (2)
  1. KISQALI [Suspect]
     Active Substance: RIBOCICLIB
     Indication: Breast cancer
     Dosage: 600 MG, QD
     Route: 048
     Dates: start: 20240904
  2. KISQALI [Suspect]
     Active Substance: RIBOCICLIB
     Indication: Breast cancer metastatic

REACTIONS (13)
  - Illness [Unknown]
  - Asthmatic crisis [Unknown]
  - Dyspnoea [Unknown]
  - Cough [Unknown]
  - Productive cough [Unknown]
  - Pneumonia [Unknown]
  - Metastases to bone [Unknown]
  - Back pain [Unknown]
  - Stress [Unknown]
  - Decreased appetite [Unknown]
  - Nausea [Unknown]
  - Fatigue [Unknown]
  - Discouragement [Unknown]

NARRATIVE: CASE EVENT DATE: 20240906
